FAERS Safety Report 23384237 (Version 2)
Quarter: 2024Q1

REPORT INFORMATION
  Report Type: Spontaneous
  Country: US (occurrence: US)
  Receive Date: 20240109
  Receipt Date: 20240110
  Transmission Date: 20240410
  Serious: Yes (Death, Hospitalization)
  Sender: FDA-Public Use
  Company Number: US-BAYER-2024A002382

PATIENT
  Age: 32 Year
  Sex: Male

DRUGS (16)
  1. DOCUSATE SODIUM [Suspect]
     Active Substance: DOCUSATE SODIUM
     Dosage: UNK
     Route: 055
  2. ACETAMINOPHEN [Suspect]
     Active Substance: ACETAMINOPHEN
  3. BACLOFEN [Suspect]
     Active Substance: BACLOFEN
  4. DOXEPIN [Suspect]
     Active Substance: DOXEPIN
  5. LAMOTRIGINE [Suspect]
     Active Substance: LAMOTRIGINE
  6. SERTRALINE [Suspect]
     Active Substance: SERTRALINE HYDROCHLORIDE
  7. PREGABALIN [Suspect]
     Active Substance: PREGABALIN
  8. TOPIRAMATE [Suspect]
     Active Substance: TOPIRAMATE
  9. HYDROCHLOROTHIAZIDE [Suspect]
     Active Substance: HYDROCHLOROTHIAZIDE
  10. DEUTETRABENAZINE [Suspect]
     Active Substance: DEUTETRABENAZINE
  11. CELECOXIB [Suspect]
     Active Substance: CELECOXIB
  12. OMEPRAZOLE [Suspect]
     Active Substance: OMEPRAZOLE
  13. EZETIMIBE [Suspect]
     Active Substance: EZETIMIBE
  14. LEVOCETIRIZINE [Suspect]
     Active Substance: LEVOCETIRIZINE
  15. MELATONIN [Suspect]
     Active Substance: MELATONIN
  16. VITAMIN D NOS [Suspect]
     Active Substance: VITAMIN D NOS
     Dosage: UNK

REACTIONS (2)
  - Completed suicide [Fatal]
  - Toxicity to various agents [Fatal]
